FAERS Safety Report 4844405-3 (Version None)
Quarter: 2005Q4

REPORT INFORMATION
  Report Type: 
  Country: None (occurrence: None)
  Receive Date: 20051202
  Receipt Date: 20051005
  Transmission Date: 20060501
  Serious: Yes (Other)
  Sender: FDA-Public Use
  Company Number: US-MERCK-0510USA04253

PATIENT
  Age: 58 Year
  Sex: Female
  Weight: 105 kg

DRUGS (2)
  1. VIOXX [Suspect]
     Route: 048
     Dates: start: 20010713, end: 20010917
  2. VIOXX [Suspect]
     Route: 048
     Dates: start: 20020129, end: 20021119

REACTIONS (2)
  - CARDIOVASCULAR DISORDER [None]
  - ISCHAEMIC STROKE [None]
